FAERS Safety Report 25569152 (Version 1)
Quarter: 2025Q3

REPORT INFORMATION
  Report Type: Spontaneous
  Country: EU (occurrence: EU)
  Receive Date: 20250716
  Receipt Date: 20250716
  Transmission Date: 20251020
  Serious: Yes (Other)
  Sender: MYLAN
  Company Number: EU-ROCHE-10000080793

PATIENT
  Age: 69 Year
  Sex: Male

DRUGS (40)
  1. DOXORUBICIN [Suspect]
     Active Substance: DOXORUBICIN
     Indication: B-cell small lymphocytic lymphoma
  2. DOXORUBICIN [Suspect]
     Active Substance: DOXORUBICIN
     Route: 065
  3. DOXORUBICIN [Suspect]
     Active Substance: DOXORUBICIN
     Route: 065
  4. DOXORUBICIN [Suspect]
     Active Substance: DOXORUBICIN
  5. CYCLOPHOSPHAMIDE [Suspect]
     Active Substance: CYCLOPHOSPHAMIDE
     Indication: B-cell small lymphocytic lymphoma
  6. CYCLOPHOSPHAMIDE [Suspect]
     Active Substance: CYCLOPHOSPHAMIDE
     Route: 065
  7. CYCLOPHOSPHAMIDE [Suspect]
     Active Substance: CYCLOPHOSPHAMIDE
     Route: 065
  8. CYCLOPHOSPHAMIDE [Suspect]
     Active Substance: CYCLOPHOSPHAMIDE
  9. DEXAMETHASONE [Suspect]
     Active Substance: DEXAMETHASONE
     Indication: B-cell small lymphocytic lymphoma
  10. DEXAMETHASONE [Suspect]
     Active Substance: DEXAMETHASONE
     Route: 065
  11. DEXAMETHASONE [Suspect]
     Active Substance: DEXAMETHASONE
     Route: 065
  12. DEXAMETHASONE [Suspect]
     Active Substance: DEXAMETHASONE
  13. PREDNISONE [Suspect]
     Active Substance: PREDNISONE
     Indication: B-cell small lymphocytic lymphoma
  14. PREDNISONE [Suspect]
     Active Substance: PREDNISONE
     Route: 065
  15. PREDNISONE [Suspect]
     Active Substance: PREDNISONE
     Route: 065
  16. PREDNISONE [Suspect]
     Active Substance: PREDNISONE
  17. RITUXIMAB [Suspect]
     Active Substance: RITUXIMAB
     Indication: B-cell small lymphocytic lymphoma
  18. RITUXIMAB [Suspect]
     Active Substance: RITUXIMAB
     Route: 065
  19. RITUXIMAB [Suspect]
     Active Substance: RITUXIMAB
     Route: 065
  20. RITUXIMAB [Suspect]
     Active Substance: RITUXIMAB
  21. VINCRISTINE [Suspect]
     Active Substance: VINCRISTINE
     Indication: B-cell small lymphocytic lymphoma
  22. VINCRISTINE [Suspect]
     Active Substance: VINCRISTINE
     Route: 065
  23. VINCRISTINE [Suspect]
     Active Substance: VINCRISTINE
     Route: 065
  24. VINCRISTINE [Suspect]
     Active Substance: VINCRISTINE
  25. BENDAMUSTINE [Concomitant]
     Active Substance: BENDAMUSTINE
     Indication: Product used for unknown indication
  26. BENDAMUSTINE [Concomitant]
     Active Substance: BENDAMUSTINE
     Route: 065
  27. BENDAMUSTINE [Concomitant]
     Active Substance: BENDAMUSTINE
     Route: 065
  28. BENDAMUSTINE [Concomitant]
     Active Substance: BENDAMUSTINE
  29. GEMCITABINE [Concomitant]
     Active Substance: GEMCITABINE
     Indication: Product used for unknown indication
  30. GEMCITABINE [Concomitant]
     Active Substance: GEMCITABINE
     Route: 065
  31. GEMCITABINE [Concomitant]
     Active Substance: GEMCITABINE
     Route: 065
  32. GEMCITABINE [Concomitant]
     Active Substance: GEMCITABINE
  33. OXALIPLATIN [Concomitant]
     Active Substance: OXALIPLATIN
     Indication: Product used for unknown indication
  34. OXALIPLATIN [Concomitant]
     Active Substance: OXALIPLATIN
     Route: 065
  35. OXALIPLATIN [Concomitant]
     Active Substance: OXALIPLATIN
     Route: 065
  36. OXALIPLATIN [Concomitant]
     Active Substance: OXALIPLATIN
  37. METHYLPREDNISOLONE [Concomitant]
     Active Substance: METHYLPREDNISOLONE
     Indication: Product used for unknown indication
     Dosage: 500 MILLIGRAM, QD (ONCE A DAY)
  38. METHYLPREDNISOLONE [Concomitant]
     Active Substance: METHYLPREDNISOLONE
     Dosage: 500 MILLIGRAM, QD (ONCE A DAY)
     Route: 065
  39. METHYLPREDNISOLONE [Concomitant]
     Active Substance: METHYLPREDNISOLONE
     Dosage: 500 MILLIGRAM, QD (ONCE A DAY)
     Route: 065
  40. METHYLPREDNISOLONE [Concomitant]
     Active Substance: METHYLPREDNISOLONE
     Dosage: 500 MILLIGRAM, QD (ONCE A DAY)

REACTIONS (2)
  - Epstein-Barr virus infection reactivation [Unknown]
  - Off label use [Unknown]
